FAERS Safety Report 5708763-X (Version None)
Quarter: 2008Q2

REPORT INFORMATION
  Report Type: 
  Country: None (occurrence: None)
  Receive Date: 20080417
  Receipt Date: 20080407
  Transmission Date: 20081010
  Serious: Yes (Congenital Anomaly)
  Sender: FDA-Public Use
  Company Number: FR-ABBOTT-03P-056-0244591-00

PATIENT
  Sex: Male
  Weight: 3.59 kg

DRUGS (1)
  1. DEPAKENE [Suspect]
     Indication: DRUG EXPOSURE DURING PREGNANCY

REACTIONS (16)
  - ABNORMAL BEHAVIOUR [None]
  - CONGENITAL EYELID MALFORMATION [None]
  - CONGENITAL HAIR DISORDER [None]
  - CONGENITAL MUSCULOSKELETAL ANOMALY [None]
  - CONGENITAL NOSE MALFORMATION [None]
  - DYSMORPHISM [None]
  - ECHOLALIA [None]
  - GAIT DISTURBANCE [None]
  - HYPERTONIA NEONATAL [None]
  - HYPOTONIA NEONATAL [None]
  - LIGAMENT LAXITY [None]
  - LIP DISORDER [None]
  - MENTAL IMPAIRMENT [None]
  - NEUROPSYCHOLOGICAL TEST ABNORMAL [None]
  - PLAGIOCEPHALY [None]
  - SPEECH DISORDER DEVELOPMENTAL [None]
